FAERS Safety Report 5423035-9 (Version None)
Quarter: 2007Q3

REPORT INFORMATION
  Report Type: 
  Country: None (occurrence: None)
  Receive Date: 20070822
  Receipt Date: 20070814
  Transmission Date: 20080115
  Serious: Yes (Other)
  Sender: FDA-Public Use
  Company Number: US-PFIZER INC-2007067367

PATIENT
  Sex: Female
  Weight: 59.9 kg

DRUGS (1)
  1. ZOLOFT [Suspect]
     Dosage: DAILY DOSE:50MG-TEXT:50MG QD EVERY OTHER DAY TDD:50MG

REACTIONS (1)
  - BREAST CANCER [None]
